FAERS Safety Report 14484419 (Version 2)
Quarter: 2018Q1

REPORT INFORMATION
  Report Type: Spontaneous
  Country: BE (occurrence: BE)
  Receive Date: 20180205
  Receipt Date: 20180213
  Transmission Date: 20180509
  Serious: Yes (Life-Threatening, Hospitalization, Other)
  Sender: FDA-Public Use
  Company Number: BE-ALVOGEN-2018-ALVOGEN-095068

PATIENT
  Age: 36 Year
  Sex: Male
  Weight: 88 kg

DRUGS (5)
  1. INLYTA [Suspect]
     Active Substance: AXITINIB
     Indication: GLIOBLASTOMA
     Route: 065
     Dates: start: 20171204, end: 20180110
  2. D-CURE [Suspect]
     Active Substance: CHOLECALCIFEROL
     Indication: VITAMIN D DEFICIENCY
     Route: 048
     Dates: start: 20171218, end: 20180110
  3. MEDROL [Suspect]
     Active Substance: METHYLPREDNISOLONE
     Indication: BRAIN OEDEMA
     Route: 048
     Dates: start: 20171229, end: 20180110
  4. LISINOPRIL. [Suspect]
     Active Substance: LISINOPRIL
     Indication: HYPERTENSION
     Route: 048
     Dates: start: 20171218, end: 20180110
  5. BEFACT (CYANOCOBALAMIN\PYRIDOXINE\THIAMINE) [Suspect]
     Active Substance: CYANOCOBALAMIN\PYRIDOXINE\THIAMINE
     Indication: VITAMIN D DEFICIENCY
     Route: 065
     Dates: start: 20171218, end: 20180110

REACTIONS (1)
  - Pulmonary embolism [Recovering/Resolving]

NARRATIVE: CASE EVENT DATE: 20180110
